FAERS Safety Report 5001088-X (Version None)
Quarter: 2006Q2

REPORT INFORMATION
  Report Type: 
  Country: None (occurrence: None)
  Receive Date: 20060512
  Receipt Date: 20060306
  Transmission Date: 20061013
  Serious: Yes (Hospitalization)
  Sender: FDA-Public Use
  Company Number: HQWYE165206MAR06

PATIENT
  Sex: Female
  Weight: 44 kg

DRUGS (14)
  1. ENBREL [Suspect]
     Indication: RHEUMATOID ARTHRITIS
     Route: 058
     Dates: start: 20051202, end: 20051213
  2. ISCOTIN [Suspect]
     Indication: TUBERCULOSIS
     Dosage: UNKNOWN
     Route: 048
     Dates: start: 20051119, end: 20051215
  3. SULFASALAZINE [Concomitant]
     Dates: start: 20051028
  4. BUCILLAMINE [Concomitant]
     Dates: start: 20051110
  5. MOBIC [Concomitant]
     Indication: RHEUMATOID ARTHRITIS
     Dosage: UNKNOWN
  6. PREDNISOLONE [Concomitant]
     Indication: RHEUMATOID ARTHRITIS
     Dosage: UNKNOWN
  7. LANSOPRAZOLE [Concomitant]
     Dosage: UNKNOWN
  8. MUCOSTA [Concomitant]
     Dosage: UNKNOWN
  9. FOSAMAX [Concomitant]
     Dosage: UNKNOWN
  10. TIZANIDINE HYDROCHLORIDE [Concomitant]
     Dosage: UNKNOWN
  11. CARBIDOPA [Concomitant]
     Dosage: UNKNOWN
  12. ACETYLSALICYLIC ACID SRT [Concomitant]
     Dosage: UNKNOWN
  13. MAGNESIUM OXIDE [Concomitant]
     Dosage: UNKNOWN
  14. BROTIZOLAM [Concomitant]
     Dosage: UNKNOWN

REACTIONS (3)
  - COMMUNICATION DISORDER [None]
  - DRUG INEFFECTIVE [None]
  - RESTLESSNESS [None]
